FAERS Safety Report 8579099-7 (Version None)
Quarter: 2012Q3

REPORT INFORMATION
  Report Type: 
  Country: None (occurrence: None)
  Receive Date: 20120808
  Receipt Date: 20120727
  Transmission Date: 20120928
  Serious: Yes (Hospitalization, Other)
  Sender: FDA-Public Use
  Company Number: FR-PFIZER INC-2012188032

PATIENT
  Age: 87 Year
  Sex: Male

DRUGS (12)
  1. BISOPROLOL [Concomitant]
     Dosage: UNK
  2. VALACICLOVIR [Concomitant]
     Dosage: UNK
     Dates: start: 20120505, end: 20120506
  3. PYOSTACINE [Suspect]
     Indication: SKIN LESION
     Dosage: UNK
     Route: 048
     Dates: start: 20120506
  4. TOBREX [Concomitant]
     Dosage: UNK
     Dates: start: 20120506
  5. RAMIPRIL [Suspect]
     Indication: PRODUCT USED FOR UNKNOWN INDICATION
     Dosage: 2.5 MG, DAILY
     Route: 048
     Dates: end: 20120509
  6. ACYCLOVIR [Suspect]
     Indication: HERPES ZOSTER OPHTHALMIC
     Dosage: 10 MG/KG, 3X/DAY
     Route: 042
     Dates: start: 20120506, end: 20120509
  7. NEO-MERCAZOLE TAB [Concomitant]
     Dosage: UNK
  8. PREVISCAN [Concomitant]
     Dosage: UNK
  9. ALLOPURINOL [Concomitant]
     Dosage: UNK
  10. LASIX [Suspect]
     Indication: PRODUCT USED FOR UNKNOWN INDICATION
     Dosage: 40 MG, 2X/DAY
     Route: 048
     Dates: end: 20120509
  11. POTASSIUM CHLORIDE [Concomitant]
     Dosage: UNK
  12. ZOVIRAX [Concomitant]
     Dosage: UNK
     Dates: start: 20120506

REACTIONS (7)
  - DIARRHOEA [None]
  - KERATITIS VIRAL [None]
  - RENAL FAILURE ACUTE [None]
  - ERYTHEMA [None]
  - BONE LESION [None]
  - CONJUNCTIVITIS INFECTIVE [None]
  - SKIN LESION [None]
